FAERS Safety Report 5390324-6 (Version None)
Quarter: 2007Q3

REPORT INFORMATION
  Report Type: 
  Country: None (occurrence: None)
  Receive Date: 20070718
  Receipt Date: 20070712
  Transmission Date: 20080115
  Serious: Yes (Hospitalization)
  Sender: FDA-Public Use
  Company Number: US-PFIZER INC-2006150045

PATIENT
  Age: 45 Year
  Sex: Male
  Weight: 69.9 kg

DRUGS (2)
  1. CELEBREX [Suspect]
     Indication: PAIN
  2. COUMADIN [Concomitant]

REACTIONS (2)
  - MYOCARDIAL INFARCTION [None]
  - PULMONARY EMBOLISM [None]
